FAERS Safety Report 6521032-3 (Version None)
Quarter: 2009Q4

REPORT INFORMATION
  Report Type: 
  Country: None (occurrence: None)
  Receive Date: 20091229
  Receipt Date: 20091217
  Transmission Date: 20100525
  Serious: Yes (Hospitalization, Disabling)
  Sender: FDA-Public Use
  Company Number: US-SANOFI-AVENTIS-F01200900540

PATIENT
  Age: 77 Year
  Sex: Female

DRUGS (13)
  1. OXALIPLATIN [Suspect]
  2. BEVACIZUMAB [Suspect]
     Dates: start: 20090925, end: 20090925
  3. BEVACIZUMAB [Suspect]
     Dates: start: 20090414, end: 20090414
  4. BLINDED THERAPY [Suspect]
     Route: 048
     Dates: start: 20080925, end: 20090423
  5. BLINDED THERAPY [Suspect]
     Route: 048
     Dates: start: 20080925, end: 20090423
  6. FLUOROURACIL [Suspect]
  7. FOLINIC ACID [Suspect]
     Route: 065
  8. METFORMIN [Concomitant]
  9. LEVAQUIN [Concomitant]
  10. AVANDIA [Concomitant]
  11. LISINOPRIL [Concomitant]
  12. GABAPENTIN [Concomitant]
  13. ALL OTHER THERAPEUTIC PRODUCTS [Concomitant]

REACTIONS (11)
  - BLOOD CREATININE INCREASED [None]
  - BLOOD UREA INCREASED [None]
  - CLOSTRIDIAL INFECTION [None]
  - DEHYDRATION [None]
  - DIABETIC KETOACIDOSIS [None]
  - HYPEROSMOLAR STATE [None]
  - HYPOPHAGIA [None]
  - ILEUS [None]
  - NEUTROPENIA [None]
  - PNEUMONIA [None]
  - PNEUMONIA ASPIRATION [None]
